FAERS Safety Report 23137839 (Version 1)
Quarter: 2023Q4

REPORT INFORMATION
  Report Type: Spontaneous
  Country: IL (occurrence: IL)
  Receive Date: 20231102
  Receipt Date: 20231102
  Transmission Date: 20240109
  Serious: Yes (Death, Other)
  Sender: FDA-Public Use
  Company Number: IL-AMGEN-ISRSP2023191879

PATIENT

DRUGS (3)
  1. BEVACIZUMAB [Suspect]
     Active Substance: BEVACIZUMAB
     Indication: Product used for unknown indication
     Dosage: UNK
     Route: 065
  2. TEMOZOLOMIDE [Concomitant]
     Active Substance: TEMOZOLOMIDE
     Dosage: UNK
     Route: 065
  3. PROCARBAZINE [Concomitant]
     Active Substance: PROCARBAZINE
     Route: 065

REACTIONS (6)
  - Death [Fatal]
  - Glioblastoma [Unknown]
  - Haemorrhage [Unknown]
  - Haematotoxicity [Unknown]
  - Fatigue [Unknown]
  - Infection [Unknown]
